FAERS Safety Report 7763372-6 (Version None)
Quarter: 2011Q3

REPORT INFORMATION
  Report Type: 
  Country: None (occurrence: None)
  Receive Date: 20110920
  Receipt Date: 20110912
  Transmission Date: 20111222
  Serious: Yes (Hospitalization, Other)
  Sender: FDA-Public Use
  Company Number: US-BRISTOL-MYERS SQUIBB COMPANY-16051484

PATIENT
  Sex: Male

DRUGS (1)
  1. COUMADIN [Suspect]

REACTIONS (4)
  - ANGINA PECTORIS [None]
  - WEIGHT INCREASED [None]
  - LUNG DISORDER [None]
  - CEREBROVASCULAR ACCIDENT [None]
